FAERS Safety Report 12116534 (Version 12)
Quarter: 2018Q3

REPORT INFORMATION
  Report Type: Report from Study
  Country: US (occurrence: US)
  Receive Date: 20160225
  Receipt Date: 20180921
  Transmission Date: 20181010
  Serious: Yes (Hospitalization)
  Sender: FDA-Public Use
  Company Number: US-ACTELION-A-US2016-131842

PATIENT
  Age: 43 Year
  Sex: Female
  Weight: 75.74 kg

DRUGS (6)
  1. TRACLEER [Suspect]
     Active Substance: BOSENTAN
     Indication: PULMONARY ARTERIAL HYPERTENSION
     Dosage: 125 MG, BID
     Route: 048
  2. TRACLEER [Suspect]
     Active Substance: BOSENTAN
     Dosage: 125 MG, BID
     Route: 048
  3. COUMADIN [Concomitant]
     Active Substance: WARFARIN SODIUM
  4. AMLODIPINE [Concomitant]
     Active Substance: AMLODIPINE BESYLATE
  5. FLOLAN [Suspect]
     Active Substance: EPOPROSTENOL SODIUM
     Indication: PRODUCT USED FOR UNKNOWN INDICATION
     Route: 065
  6. SILDENAFIL. [Concomitant]
     Active Substance: SILDENAFIL

REACTIONS (14)
  - Herpes zoster [Unknown]
  - Myocardial infarction [Unknown]
  - Pneumonia [Unknown]
  - Right ventricular failure [Unknown]
  - Kidney infection [Unknown]
  - Sepsis [Unknown]
  - Catheter site infection [Unknown]
  - Cerebrovascular accident [Unknown]
  - Fatigue [Unknown]
  - Catheter management [Unknown]
  - Influenza [Unknown]
  - Fluid retention [Unknown]
  - Device related infection [Unknown]
  - Escherichia infection [Unknown]
